FAERS Safety Report 7994578-9 (Version None)
Quarter: 2011Q4

REPORT INFORMATION
  Report Type: 
  Country: None (occurrence: None)
  Receive Date: 20111220
  Receipt Date: 20111206
  Transmission Date: 20120403
  Serious: Yes (Life-Threatening)
  Sender: FDA-Public Use
  Company Number: US-PFIZER INC-2011306775

PATIENT
  Age: 61 Year
  Sex: Female

DRUGS (3)
  1. ALTEPLASE [Interacting]
     Indication: ISCHAEMIC STROKE
     Dosage: 6.1 MG, IV BOLUS, UNK
     Route: 040
  2. ALTEPLASE [Interacting]
     Dosage: 54.9 MG, INFUSION OVER 50 MINUTES
     Route: 042
  3. RAMIPRIL [Suspect]
     Indication: HYPERTENSION
     Dosage: UNK

REACTIONS (2)
  - ANAPHYLACTOID SHOCK [None]
  - DRUG INTERACTION [None]
